FAERS Safety Report 5405597-0 (Version None)
Quarter: 2007Q3

REPORT INFORMATION
  Report Type: 
  Country: None (occurrence: None)
  Receive Date: 20070806
  Receipt Date: 20070802
  Transmission Date: 20080115
  Serious: Yes (Other)
  Sender: FDA-Public Use
  Company Number: US-BAYER-200614279BWH

PATIENT
  Age: 61 Year
  Sex: Male

DRUGS (9)
  1. NEXAVAR [Suspect]
     Indication: RENAL CELL CARCINOMA STAGE UNSPECIFIED
     Dosage: TOTAL DAILY DOSE: 800 MG  UNIT DOSE: 200 MG
     Route: 048
     Dates: start: 20051101
  2. NEXAVAR [Suspect]
     Dosage: TOTAL DAILY DOSE: 800 MG  UNIT DOSE: 200 MG
     Route: 048
     Dates: start: 20050912, end: 20051101
  3. ZOCOR [Concomitant]
  4. RANITIDINE [Concomitant]
  5. ATENOLOL [Concomitant]
  6. ASPIRIN [Concomitant]
  7. FLOMAX [Concomitant]
  8. IMODIUM [Concomitant]
  9. FELODIPINE [Concomitant]

REACTIONS (7)
  - ALOPECIA [None]
  - BLISTER [None]
  - DIARRHOEA [None]
  - PRURITUS [None]
  - RASH [None]
  - RASH GENERALISED [None]
  - SQUAMOUS CELL CARCINOMA [None]
